FAERS Safety Report 24097099 (Version 1)
Quarter: 2024Q3

REPORT INFORMATION
  Report Type: Spontaneous
  Country: IT (occurrence: IT)
  Receive Date: 20240716
  Receipt Date: 20240716
  Transmission Date: 20241017
  Serious: Yes (Other)
  Sender: TEVA
  Company Number: None

PATIENT
  Age: 78 Year
  Sex: Male

DRUGS (2)
  1. CAPECITABINE [Suspect]
     Active Substance: CAPECITABINE
     Indication: Colon cancer
     Dosage: 500 MG 3+3/DAY - 1ST CYCLE - THERAPY EVERY 21 DAYS, FOR 14 DAYS, CAPECITABINA
     Route: 048
     Dates: start: 20240319, end: 20240401
  2. OXALIPLATIN [Suspect]
     Active Substance: OXALIPLATIN
     Indication: Colon cancer
     Dosage: I CYCLE - THERAPY EVERY 21 DAYS, OXALIPLATINO
     Route: 042
     Dates: start: 20240318, end: 20240318

REACTIONS (2)
  - Neutropenia [Recovering/Resolving]
  - Leukopenia [Recovering/Resolving]

NARRATIVE: CASE EVENT DATE: 20240408
